FAERS Safety Report 6966744-2 (Version None)
Quarter: 2010Q3

REPORT INFORMATION
  Report Type: 
  Country: None (occurrence: None)
  Receive Date: 20100906
  Receipt Date: 20100826
  Transmission Date: 20110219
  Serious: Yes (Hospitalization)
  Sender: FDA-Public Use
  Company Number: JP-BAXTER-2010BH008806

PATIENT
  Age: 10 Month
  Sex: Male
  Weight: 9 kg

DRUGS (2)
  1. ADVATE [Suspect]
     Indication: FACTOR VIII DEFICIENCY
     Route: 042
     Dates: start: 20090914, end: 20091009
  2. ADVATE [Suspect]
     Route: 042
     Dates: start: 20091113

REACTIONS (1)
  - MENINGITIS PNEUMOCOCCAL [None]
